FAERS Safety Report 6983363-2 (Version None)
Quarter: 2010Q3

REPORT INFORMATION
  Report Type: 
  Country: None (occurrence: None)
  Receive Date: 20100914
  Receipt Date: 20100908
  Transmission Date: 20110219
  Serious: Yes (Death, Other)
  Sender: FDA-Public Use
  Company Number: PHHY2010JP46407

PATIENT
  Sex: Female

DRUGS (8)
  1. DIOVAN [Suspect]
     Dosage: 80 MG, ONCE DAILY
     Route: 048
     Dates: start: 20080710, end: 20090710
  2. AZELASTINE HCL [Concomitant]
     Dosage: 8 MG, UNK
     Route: 048
     Dates: start: 20030101, end: 20090710
  3. DOXAZOSIN MESYLATE [Concomitant]
     Dosage: 1 MG, UNK
     Route: 048
     Dates: start: 20080806, end: 20090710
  4. ALDACTONE [Concomitant]
     Dosage: 25 MG, UNK
     Route: 048
     Dates: start: 20090501, end: 20090710
  5. VITAMEDIN CAPSULE [Concomitant]
     Dosage: 150 MG, UNK
     Route: 048
     Dates: start: 20020322, end: 20090710
  6. PHENLASE [Concomitant]
     Dosage: 3 DF, UNK
     Route: 048
     Dates: start: 20010802, end: 20090710
  7. MECOBALAMIN [Concomitant]
     Dosage: 1500 UG, UNK
     Route: 048
     Dates: start: 20070403, end: 20090710
  8. HACHIMIJIO-GAN [Concomitant]
     Dosage: 2.5 G, UNK
     Route: 048
     Dates: start: 20080318, end: 20090710

REACTIONS (4)
  - BLOOD PRESSURE INCREASED [None]
  - DRUG EFFECT DECREASED [None]
  - LUNG CANCER METASTATIC [None]
  - PLEURAL EFFUSION [None]
